FAERS Safety Report 15543353 (Version 1)
Quarter: 2018Q4

REPORT INFORMATION
  Report Type: Spontaneous
  Country: US (occurrence: US)
  Receive Date: 20181023
  Receipt Date: 20181023
  Transmission Date: 20190205
  Serious: No
  Sender: FDA-Public Use
  Company Number: US-BAUSCH-BL-2017-027134

PATIENT
  Age: 49 Year
  Sex: Female
  Weight: 70.37 kg

DRUGS (5)
  1. WELLBUTRIN XL [Suspect]
     Active Substance: BUPROPION HYDROCHLORIDE
     Route: 048
     Dates: start: 201707
  2. ZOLOFT [Concomitant]
     Active Substance: SERTRALINE HYDROCHLORIDE
     Indication: PRODUCT USED FOR UNKNOWN INDICATION
     Route: 048
  3. WELLBUTRIN XL [Suspect]
     Active Substance: BUPROPION HYDROCHLORIDE
     Indication: DEPRESSION
     Dosage: ONE TABLET AS DIRECTED, ABOUT 12 TO 15 YEARS PRIOR TO THE DATE OF THIS INITIAL REPORT
     Route: 048
     Dates: end: 20170704
  4. WELLBUTRIN XL [Suspect]
     Active Substance: BUPROPION HYDROCHLORIDE
     Route: 048
     Dates: start: 2017
  5. RELPAX [Concomitant]
     Active Substance: ELETRIPTAN HYDROBROMIDE
     Indication: PRODUCT USED FOR UNKNOWN INDICATION
     Dosage: ONE TABLET AS NEEDED
     Route: 048

REACTIONS (3)
  - Tinnitus [Not Recovered/Not Resolved]
  - Withdrawal syndrome [Not Recovered/Not Resolved]
  - Disease recurrence [Not Recovered/Not Resolved]

NARRATIVE: CASE EVENT DATE: 201707
